FAERS Safety Report 10525549 (Version 1)
Quarter: 2014Q4

REPORT INFORMATION
  Report Type: Report from Study
  Country: US (occurrence: US)
  Receive Date: 20141017
  Receipt Date: 20141017
  Transmission Date: 20150528
  Serious: Yes (Hospitalization)
  Sender: FDA-Public Use
  Company Number: US-SA-2014SA140944

PATIENT
  Sex: Female

DRUGS (2)
  1. LANTUS SOLOSTAR [Suspect]
     Active Substance: INSULIN GLARGINE
     Indication: DIABETES MELLITUS
     Route: 058
  2. SOLOSTAR [Concomitant]
     Active Substance: DEVICE
     Indication: DIABETES MELLITUS

REACTIONS (8)
  - Hypersensitivity [Unknown]
  - Cough [Unknown]
  - Injection site haemorrhage [Unknown]
  - Amnesia [Unknown]
  - Haematemesis [Unknown]
  - Nasopharyngitis [Unknown]
  - Arthritis [Unknown]
  - Osteoporosis [Unknown]
